FAERS Safety Report 5528025-3 (Version None)
Quarter: 2007Q4

REPORT INFORMATION
  Report Type: 
  Country: None (occurrence: None)
  Receive Date: 20071113
  Receipt Date: 20061205
  Transmission Date: 20080405
  Serious: Yes (Hospitalization)
  Sender: FDA-Public Use
  Company Number: 2006-BP-14149BP

PATIENT
  Sex: Female

DRUGS (2)
  1. MICARDIS [Suspect]
  2. SULAR [Suspect]

REACTIONS (1)
  - LIVER FUNCTION TEST ABNORMAL [None]
